FAERS Safety Report 13395043 (Version 2)
Quarter: 2017Q2

REPORT INFORMATION
  Report Type: Report from Study
  Country: JP (occurrence: JP)
  Receive Date: 20170403
  Receipt Date: 20170420
  Transmission Date: 20170830
  Serious: Yes (Hospitalization, Other)
  Sender: FDA-Public Use
  Company Number: JP-BRISTOL-MYERS SQUIBB COMPANY-BMS-2017-027962

PATIENT
  Age: 81 Year
  Sex: Male
  Weight: 62 kg

DRUGS (2)
  1. CLOPIDOGREL [Concomitant]
     Active Substance: CLOPIDOGREL BISULFATE
     Indication: CEREBROVASCULAR ACCIDENT
     Dosage: 37.5 MG, QD
     Route: 048
     Dates: end: 20151022
  2. APIXABAN [Suspect]
     Active Substance: APIXABAN
     Indication: CEREBROVASCULAR ACCIDENT PROPHYLAXIS
     Dosage: 5 MG, BID
     Route: 048
     Dates: start: 20140620, end: 20160516

REACTIONS (5)
  - Fall [Unknown]
  - Haematoma evacuation [Unknown]
  - Femur fracture [Recovered/Resolved]
  - Osteosynthesis [Unknown]
  - Subdural haematoma [Recovered/Resolved]

NARRATIVE: CASE EVENT DATE: 20150930
